FAERS Safety Report 24277441 (Version 1)
Quarter: 2024Q3

REPORT INFORMATION
  Report Type: Spontaneous
  Country: US (occurrence: US)
  Receive Date: 20240903
  Receipt Date: 20240903
  Transmission Date: 20241016
  Serious: Yes (Other)
  Sender: BAYER
  Company Number: US-BAYER-2024A123474

PATIENT
  Age: 36 Year
  Sex: Female

DRUGS (6)
  1. CIPRO [Suspect]
     Active Substance: CIPROFLOXACIN HYDROCHLORIDE
     Indication: Urinary tract infection
     Dosage: 500 MG, QD
     Dates: start: 20240818, end: 20240819
  2. MEDROXYPROGESTERONE [Concomitant]
     Active Substance: MEDROXYPROGESTERONE
     Indication: Polycystic ovaries
     Dosage: UNK
     Dates: start: 20220901
  3. LEVOTHYROXINE [Concomitant]
     Active Substance: LEVOTHYROXINE\LEVOTHYROXINE SODIUM
     Indication: Autoimmune thyroiditis
     Dosage: UNK
     Dates: start: 20220901
  4. METFORMIN [Concomitant]
     Active Substance: METFORMIN HYDROCHLORIDE
     Indication: Polycystic ovaries
     Dosage: UNK
     Dates: start: 20220901
  5. GABAPENTIN [Concomitant]
     Active Substance: GABAPENTIN
     Indication: Adenomyosis
     Dosage: UNK
     Dates: start: 20220901
  6. TRAMADOL [Concomitant]
     Active Substance: TRAMADOL\TRAMADOL HYDROCHLORIDE
     Indication: Uterine leiomyoma
     Dosage: UNK
     Dates: start: 20220901

REACTIONS (5)
  - Neuropathy peripheral [Not Recovered/Not Resolved]
  - Tendonitis [Not Recovered/Not Resolved]
  - Muscular weakness [Not Recovered/Not Resolved]
  - Fatigue [Not Recovered/Not Resolved]
  - Hypoaesthesia [None]

NARRATIVE: CASE EVENT DATE: 20240819
